FAERS Safety Report 4954188-4 (Version None)
Quarter: 2006Q1

REPORT INFORMATION
  Report Type: 
  Country: None (occurrence: None)
  Receive Date: 20060327
  Receipt Date: 20051004
  Transmission Date: 20060701
  Serious: Yes (Disabling)
  Sender: FDA-Public Use
  Company Number: US-MERCK-0510USA02406

PATIENT
  Age: 45 Year
  Sex: Male
  Weight: 118 kg

DRUGS (14)
  1. VIOXX [Suspect]
     Indication: PAIN
     Route: 048
     Dates: start: 20011101, end: 20031101
  2. VIOXX [Suspect]
     Indication: ANTIINFLAMMATORY THERAPY
     Route: 048
     Dates: start: 20011101, end: 20031101
  3. HYDROCODONE BITARTRATE [Concomitant]
     Route: 065
     Dates: start: 20010101
  4. AMITRIPTYLINE HYDROCHLORIDE [Concomitant]
     Route: 065
     Dates: start: 19860101
  5. AMITRIPTYLINE HYDROCHLORIDE [Concomitant]
     Route: 065
  6. ZOLOFT [Concomitant]
     Route: 065
  7. NADOLOL [Concomitant]
     Route: 065
  8. [THERAPY UNSPECIFIED] [Concomitant]
     Route: 065
  9. LISINOPRIL [Concomitant]
     Route: 065
     Dates: start: 19940101
  10. CELEBREX [Concomitant]
     Indication: PAIN MANAGEMENT
     Route: 065
     Dates: start: 19990408, end: 20031101
  11. NAPROXEN [Concomitant]
     Route: 065
     Dates: start: 19940101
  12. HALDOL [Concomitant]
     Indication: DEPRESSION
     Route: 065
     Dates: start: 19860101
  13. CYCLOBENZAPRINE HYDROCHLORIDE [Concomitant]
     Indication: CONVULSION
     Route: 065
     Dates: start: 19910101, end: 20040101
  14. LITHIUM SUCCINATE [Concomitant]
     Indication: BIPOLAR DISORDER
     Route: 065

REACTIONS (7)
  - ANXIETY [None]
  - BLOOD CHOLESTEROL INCREASED [None]
  - CEREBROVASCULAR ACCIDENT [None]
  - DEPRESSION [None]
  - OEDEMA [None]
  - OVERDOSE [None]
  - PARALYSIS [None]
